FAERS Safety Report 4702616-1 (Version None)
Quarter: 2005Q2

REPORT INFORMATION
  Report Type: 
  Country: None (occurrence: None)
  Receive Date: 20050624
  Receipt Date: 20050421
  Transmission Date: 20051028
  Serious: No
  Sender: FDA-Public Use
  Company Number: 2005BI008410

PATIENT
  Age: 44 Year
  Sex: Female
  Weight: 62.1428 kg

DRUGS (2)
  1. AVONEX [Suspect]
     Indication: MULTIPLE SCLEROSIS
     Dosage: 30 UG;QW;IM
     Route: 030
     Dates: start: 19970701, end: 20001101
  2. NATALIZUMAB [Suspect]
     Indication: MULTIPLE SCLEROSIS
     Dosage: 300 MG;QM;IV
     Route: 042
     Dates: start: 20050227, end: 20050227

REACTIONS (5)
  - ALOPECIA [None]
  - ASTHENIA [None]
  - ATROPHY [None]
  - DIFFICULTY IN WALKING [None]
  - MUSCULOSKELETAL DISORDER [None]
